FAERS Safety Report 6071620-6 (Version None)
Quarter: 2009Q1

REPORT INFORMATION
  Report Type: 
  Country: None (occurrence: None)
  Receive Date: 20090210
  Receipt Date: 20090204
  Transmission Date: 20090719
  Serious: Yes (Other)
  Sender: FDA-Public Use
  Company Number: FR-JNJFOC-20090201194

PATIENT
  Age: 12 Year
  Sex: Male

DRUGS (7)
  1. RISPERDALORO [Suspect]
     Indication: AGITATION
     Route: 048
  2. RISPERDALORO [Suspect]
     Indication: ANXIETY
     Route: 048
  3. RISPERDALORO [Suspect]
     Indication: ABNORMAL BEHAVIOUR
     Route: 048
  4. RISPERDAL [Suspect]
     Indication: AGITATION
     Route: 048
  5. RISPERDAL [Suspect]
     Indication: ANXIETY
     Route: 048
  6. RISPERDAL [Suspect]
     Indication: ABNORMAL BEHAVIOUR
     Route: 048
  7. RITALIN [Concomitant]
     Route: 048

REACTIONS (4)
  - ABDOMINAL PAIN [None]
  - DIARRHOEA [None]
  - OFF LABEL USE [None]
  - OVERDOSE [None]
